FAERS Safety Report 4541080-2 (Version None)
Quarter: 2004Q4

REPORT INFORMATION
  Report Type: 
  Country: None (occurrence: None)
  Receive Date: 20041228
  Receipt Date: 20041215
  Transmission Date: 20050328
  Serious: Yes (Hospitalization)
  Sender: FDA-Public Use
  Company Number: A04200401180

PATIENT
  Sex: Male

DRUGS (1)
  1. PLAVIX [Suspect]
     Indication: HAEMODILUTION
     Dosage: 75 MG OD, ORAL
     Route: 048
     Dates: start: 19980101, end: 20040101

REACTIONS (1)
  - PANCREATIC CARCINOMA [None]
